FAERS Safety Report 11268072 (Version 1)
Quarter: 2015Q3

REPORT INFORMATION
  Report Type: Report from Study
  Country: US (occurrence: US)
  Receive Date: 20150714
  Receipt Date: 20150714
  Transmission Date: 20151125
  Serious: No
  Sender: FDA-Public Use
  Company Number: US-AMGEN-USASL2015067655

PATIENT
  Age: 10 Year
  Sex: Male

DRUGS (1)
  1. ENBREL [Suspect]
     Active Substance: ETANERCEPT
     Indication: ANKYLOSING SPONDYLITIS
     Dosage: 8ML AND 7ML, QWK
     Route: 065
     Dates: start: 20140604

REACTIONS (3)
  - Injection site erythema [Recovered/Resolved]
  - Injection site mass [Recovered/Resolved]
  - Injection site warmth [Recovered/Resolved]

NARRATIVE: CASE EVENT DATE: 20150704
